FAERS Safety Report 11102996 (Version 1)
Quarter: 2015Q2

REPORT INFORMATION
  Report Type: Spontaneous
  Country: US (occurrence: None)
  Receive Date: 20150508
  Receipt Date: 20150508
  Transmission Date: 20150821
  Serious: Yes (Hospitalization)
  Sender: FDA-Public Use
  Company Number: None

PATIENT
  Age: 56 Year
  Sex: Male
  Weight: 87 kg

DRUGS (2)
  1. CYTARABINE. [Suspect]
     Active Substance: CYTARABINE
     Dates: start: 20150412
  2. ETOPOSIDE (VP-16) [Suspect]
     Active Substance: ETOPOSIDE
     Indication: LUNG INFECTION
     Dates: start: 20150412

REACTIONS (6)
  - Neutropenia [None]
  - Pancytopenia [None]
  - Pyrexia [None]
  - Stomatococcal infection [None]
  - Blood culture positive [None]
  - Dyspnoea [None]

NARRATIVE: CASE EVENT DATE: 20150427
